FAERS Safety Report 24565893 (Version 3)
Quarter: 2024Q4

REPORT INFORMATION
  Report Type: Report from Study
  Country: DK (occurrence: DK)
  Receive Date: 20241030
  Receipt Date: 20241206
  Transmission Date: 20250115
  Serious: Yes (Hospitalization)
  Sender: ABBVIE
  Company Number: DK-ABBVIE-5977936

PATIENT
  Age: 73 Year
  Sex: Male
  Weight: 70.8 kg

DRUGS (15)
  1. FOSCARBIDOPA\FOSLEVODOPA [Suspect]
     Active Substance: FOSCARBIDOPA\FOSLEVODOPA
     Indication: Parkinson^s disease
     Dosage: ABDOMINAL REGION  LOADING DOSE DRUG:1.2 ML?CONTINUOUS RATE PUMP SETTING BASE:0.40 ML/H?CONTINUOUS...
     Route: 058
     Dates: start: 20240626, end: 20240626
  2. FOSCARBIDOPA\FOSLEVODOPA [Suspect]
     Active Substance: FOSCARBIDOPA\FOSLEVODOPA
     Dosage: LOADING DOSE DRUG:1.2 ML?CONTINUOUS RATE PUMP SETTING BASE:0.3 ML/H?CONTINUOUS RATE PUMP SETTING ...
     Route: 058
     Dates: start: 20240626, end: 20240627
  3. FOSCARBIDOPA\FOSLEVODOPA [Suspect]
     Active Substance: FOSCARBIDOPA\FOSLEVODOPA
     Dosage: LOADING DOSE DRUG:1.2 ML?CONTINUOUS RATE PUMP SETTING BASE:0.40ML/H?CONTINUOUS RATE PUMP SETTING ...
     Route: 058
     Dates: start: 20240701, end: 20241008
  4. FOSCARBIDOPA\FOSLEVODOPA [Suspect]
     Active Substance: FOSCARBIDOPA\FOSLEVODOPA
     Dosage: LOADING DOSE DRUG:1.2 ML?CONTINUOUS RATE PUMP SETTING BASE:0.40ML/H?CONTINUOUS RATE PUMP SETTING ...
     Route: 058
     Dates: start: 20240627, end: 20240701
  5. FOSCARBIDOPA\FOSLEVODOPA [Suspect]
     Active Substance: FOSCARBIDOPA\FOSLEVODOPA
     Dosage: LOADING DOSE DRUG:1.2 ML?CONTINUOUS RATE PUMP SETTING BASE:0.40ML/H?CONTINUOUS RATE PUMP SETTING ...
     Route: 058
     Dates: start: 20240701, end: 20241008
  6. FOSCARBIDOPA\FOSLEVODOPA [Suspect]
     Active Substance: FOSCARBIDOPA\FOSLEVODOPA
     Dosage: LOADING DOSE DRUG:0.42 ML?CONTINUOUS RATE PUMP SETTING BASE:0.42ML/H?CONTINUOUS RATE PUMP SETTING...
     Route: 058
     Dates: start: 20241008
  7. GABAPENTIN [Concomitant]
     Active Substance: GABAPENTIN
     Indication: Pain
     Route: 048
     Dates: start: 20230511
  8. PANTOPRAZOLE SODIUM [Concomitant]
     Active Substance: PANTOPRAZOLE SODIUM
     Indication: Antacid therapy
     Route: 048
     Dates: start: 201303, end: 20241025
  9. Calcium with d-vitamin [Concomitant]
     Indication: Mineral supplementation
     Dosage: 2 TABLET
     Route: 048
     Dates: start: 20230312
  10. VITAMIN B12 [Concomitant]
     Active Substance: CYANOCOBALAMIN
     Indication: Vitamin supplementation
     Route: 048
     Dates: start: 20240129
  11. ACETAMINOPHEN [Concomitant]
     Active Substance: ACETAMINOPHEN
     Indication: Pain management
     Dosage: TIME INTERVAL: AS NECESSARY
     Route: 048
     Dates: start: 20180917
  12. TADALAFIL [Concomitant]
     Active Substance: TADALAFIL
     Indication: Benign prostatic hyperplasia
     Route: 048
     Dates: start: 20140209
  13. CLOXACILLIN [Concomitant]
     Active Substance: CLOXACILLIN
     Indication: Limb injury
     Route: 042
     Dates: start: 20241023, end: 20241023
  14. SINEMET CR [Concomitant]
     Active Substance: CARBIDOPA\LEVODOPA
     Indication: Product used for unknown indication
     Route: 048
     Dates: start: 20240626
  15. ROPINIROLE [Concomitant]
     Active Substance: ROPINIROLE
     Indication: Parkinson^s disease
     Route: 048
     Dates: start: 20160530

REACTIONS (1)
  - Pneumonia [Recovered/Resolved]

NARRATIVE: CASE EVENT DATE: 20241023
